FAERS Safety Report 6186976-3 (Version None)
Quarter: 2009Q2

REPORT INFORMATION
  Report Type: 
  Country: None (occurrence: None)
  Receive Date: 20090508
  Receipt Date: 20090508
  Transmission Date: 20091009
  Serious: Yes (Life-Threatening)
  Sender: FDA-Public Use
  Company Number: None

PATIENT
  Age: 52 Year
  Sex: Male
  Weight: 68.9467 kg

DRUGS (1)
  1. LIPITOR [Suspect]
     Indication: BLOOD CHOLESTEROL INCREASED
     Dosage: 40 MG 1 ONCE A DAY PO
     Route: 048
     Dates: start: 20021120, end: 20081110

REACTIONS (5)
  - ASTHENIA [None]
  - CORONARY ARTERY BYPASS [None]
  - EJECTION FRACTION DECREASED [None]
  - IMPAIRED WORK ABILITY [None]
  - UBIQUINONE DECREASED [None]
